FAERS Safety Report 7692777-7 (Version None)
Quarter: 2011Q3

REPORT INFORMATION
  Report Type: 
  Country: None (occurrence: None)
  Receive Date: 20110819
  Receipt Date: 20110809
  Transmission Date: 20111222
  Serious: Yes (Death, Other)
  Sender: FDA-Public Use
  Company Number: GB-JNJFOC-20110805557

PATIENT
  Age: 67 Year
  Sex: Female

DRUGS (3)
  1. INFLIXIMAB, RECOMBINANT [Suspect]
     Indication: PSORIASIS
     Route: 042
  2. CYCLOSPORINE [Concomitant]
  3. INFLIXIMAB, RECOMBINANT [Suspect]
     Route: 042

REACTIONS (3)
  - VAGINAL CANCER [None]
  - DEATH [None]
  - METASTASES TO LUNG [None]
